FAERS Safety Report 18748681 (Version 2)
Quarter: 2021Q2

REPORT INFORMATION
  Report Type: Report from Study
  Country: DE (occurrence: DE)
  Receive Date: 20210115
  Receipt Date: 20210630
  Transmission Date: 20210717
  Serious: Yes (Death, Life-Threatening, Other)
  Sender: FDA-Public Use
  Company Number: DE-ALXN-A202018478

PATIENT
  Age: 79 Year
  Sex: Female

DRUGS (10)
  1. ANDEXXA [Suspect]
     Active Substance: ANDEXANET ALFA
     Dosage: 960 MG, SINGLE
     Route: 041
     Dates: start: 20201010, end: 20201010
  2. ATORVASTATIN [Concomitant]
     Active Substance: ATORVASTATIN
     Indication: HYPERLIPIDAEMIA
     Dosage: 40 MG, QD IN THE EVENING
     Route: 048
  3. ALENDRONAT [Concomitant]
     Active Substance: ALENDRONATE SODIUM
     Indication: OSTEOPOROSIS
     Dosage: 70 ?G, QW WEDENSDAY
     Route: 048
     Dates: start: 201901
  4. APIXABAN [Concomitant]
     Active Substance: APIXABAN
     Indication: ATRIAL FIBRILLATION
     Dosage: 2.5 MG, BID
     Route: 048
     Dates: start: 20180322, end: 20201009
  5. METOPROLOL. [Concomitant]
     Active Substance: METOPROLOL
     Indication: HYPERTENSION
     Dosage: 47.5 MG, BID
     Route: 048
     Dates: start: 201803
  6. AMIODARON                          /00133101/ [Concomitant]
     Active Substance: AMIODARONE
     Indication: ATRIAL FIBRILLATION
     Dosage: 200 MG, QD
     Route: 048
     Dates: start: 201803
  7. PANTOPRAZOL                        /01263201/ [Concomitant]
     Active Substance: PANTOPRAZOLE
     Indication: GASTROINTESTINAL ULCER
     Dosage: 20 MG, QD
     Route: 048
     Dates: start: 201803
  8. RAMIPRIL. [Concomitant]
     Active Substance: RAMIPRIL
     Indication: HYPERTENSION
     Dosage: 2.5 ?G, QD
     Route: 048
     Dates: start: 201001, end: 20201012
  9. ANDEXXA [Suspect]
     Active Substance: ANDEXANET ALFA
     Indication: PROCOAGULANT THERAPY
     Dosage: 800 MG, SINGLE
     Route: 040
     Dates: start: 20201010, end: 20201010
  10. VITAMIN D                          /00107901/ [Concomitant]
     Active Substance: ERGOCALCIFEROL
     Indication: OSTEOPOROSIS
     Dosage: 1000 IU, QD
     Route: 048
     Dates: start: 201901

REACTIONS (4)
  - Ischaemic stroke [Not Recovered/Not Resolved]
  - Status epilepticus [Not Recovered/Not Resolved]
  - Cardiac failure [Fatal]
  - Troponin increased [Not Recovered/Not Resolved]

NARRATIVE: CASE EVENT DATE: 20201010
